FAERS Safety Report 15324110 (Version 2)
Quarter: 2018Q4

REPORT INFORMATION
  Report Type: Spontaneous
  Country: HU (occurrence: HU)
  Receive Date: 20180828
  Receipt Date: 20181012
  Transmission Date: 20190204
  Serious: Yes (Hospitalization, Other)
  Sender: FDA-Public Use
  Company Number: HU-TEVA-2018-HU-948222

PATIENT
  Age: 77 Year
  Sex: Female

DRUGS (4)
  1. GUAIFENESIN. [Suspect]
     Active Substance: GUAIFENESIN
     Indication: BACK PAIN
     Route: 065
  2. ALLOPURINOL. [Suspect]
     Active Substance: ALLOPURINOL
     Route: 048
  3. TRAMADOL. [Suspect]
     Active Substance: TRAMADOL
     Indication: BACK PAIN
     Route: 065
  4. METHYLPREDNISOLONE. [Suspect]
     Active Substance: METHYLPREDNISOLONE
     Indication: BACK PAIN
     Route: 065

REACTIONS (8)
  - Stevens-Johnson syndrome [Recovered/Resolved]
  - Conjunctivitis [Recovered/Resolved]
  - Blood creatinine increased [Recovered/Resolved]
  - Thrombocytopenia [Recovered/Resolved]
  - Oropharyngeal candidiasis [Recovered/Resolved]
  - Iridocyclitis [Recovered/Resolved]
  - Blood urea increased [Recovered/Resolved]
  - Pruritus generalised [Recovered/Resolved]
